FAERS Safety Report 6093594-4 (Version None)
Quarter: 2009Q1

REPORT INFORMATION
  Report Type: 
  Country: None (occurrence: None)
  Receive Date: 20090226
  Receipt Date: 20090224
  Transmission Date: 20090719
  Serious: Yes (Death)
  Sender: FDA-Public Use
  Company Number: US-ASTRAZENECA-2009UW05208

PATIENT
  Age: 88 Year
  Sex: Female
  Weight: 65.8 kg

DRUGS (4)
  1. PULMICORT RESPULES [Suspect]
     Indication: DYSPNOEA
     Route: 055
  2. BLOOD PRESSURE MEDICATION [Concomitant]
  3. LASIX [Concomitant]
  4. ARICEPT [Concomitant]

REACTIONS (1)
  - CARDIAC FAILURE CONGESTIVE [None]
